FAERS Safety Report 6988694-8 (Version None)
Quarter: 2010Q3

REPORT INFORMATION
  Report Type: 
  Country: None (occurrence: None)
  Receive Date: 20100916
  Receipt Date: 20100908
  Transmission Date: 20110219
  Serious: Yes (Other)
  Sender: FDA-Public Use
  Company Number: GB-ELI_LILLY_AND_COMPANY-GB201007002482

PATIENT
  Sex: Male
  Weight: 141 kg

DRUGS (6)
  1. BYETTA [Suspect]
     Indication: TYPE 2 DIABETES MELLITUS
     Dosage: 5 UG, DAILY (1/D)
     Route: 058
  2. BYETTA [Suspect]
     Dosage: 10 UG, DAILY (1/D)
     Route: 058
     Dates: start: 20100331
  3. METFORMIN [Concomitant]
     Dosage: 2 G, UNKNOWN
     Route: 048
  4. GLICLAZIDE [Concomitant]
     Dosage: 160 MG, UNKNOWN
     Route: 048
  5. DICLOFENAC [Concomitant]
     Dosage: UNK, UNKNOWN
     Route: 048
  6. BENDROFLUMETHIAZIDE [Concomitant]

REACTIONS (2)
  - BLOOD GLUCOSE INCREASED [None]
  - GLYCOSYLATED HAEMOGLOBIN INCREASED [None]
